FAERS Safety Report 21295861 (Version 1)
Quarter: 2022Q3

REPORT INFORMATION
  Report Type: Spontaneous
  Country: FR (occurrence: FR)
  Receive Date: 20220906
  Receipt Date: 20220906
  Transmission Date: 20221027
  Serious: Yes (Hospitalization)
  Sender: FDA-Public Use
  Company Number: FR-SUN PHARMACEUTICAL INDUSTRIES LTD-2022RR-353005

PATIENT
  Age: 90 Year
  Sex: Female
  Weight: 61 kg

DRUGS (9)
  1. PAROXETINE [Suspect]
     Active Substance: PAROXETINE
     Indication: Dementia
     Dosage: 10 MILLIGRAM, DAILY
     Route: 048
     Dates: end: 20220415
  2. PERINDOPRIL [Suspect]
     Active Substance: PERINDOPRIL
     Indication: Hypertension
     Dosage: 8 MILLIGRAM, DAILY
     Route: 048
  3. ISRADIPINE [Suspect]
     Active Substance: ISRADIPINE
     Indication: Hypertension
     Dosage: 2.5 MILLIGRAM, DAILY
     Route: 048
  4. BUSPIRONE HYDROCHLORIDE [Suspect]
     Active Substance: BUSPIRONE HYDROCHLORIDE
     Indication: Dementia
     Dosage: 10 MILLIGRAM, DAILY
     Route: 048
     Dates: end: 20220413
  5. AMIODARONE [Concomitant]
     Active Substance: AMIODARONE
     Indication: Product used for unknown indication
     Dosage: UNK
     Route: 065
  6. ATORVASTATIN [Concomitant]
     Active Substance: ATORVASTATIN
     Indication: Product used for unknown indication
     Dosage: UNK
     Route: 065
  7. ELIQUIS 2,5 mg, film-coated tablet [Concomitant]
     Indication: Product used for unknown indication
     Dosage: UNK
     Route: 065
  8. METFORMIN HYDROCHLORIDE [Concomitant]
     Active Substance: METFORMIN HYDROCHLORIDE
     Indication: Product used for unknown indication
     Dosage: UNK
     Route: 065
  9. ACETAMINOPHEN [Concomitant]
     Active Substance: ACETAMINOPHEN
     Indication: Product used for unknown indication
     Dosage: UNK
     Route: 065

REACTIONS (1)
  - Fall [Recovered/Resolved]

NARRATIVE: CASE EVENT DATE: 20220413
